FAERS Safety Report 9930525 (Version 1)
Quarter: 2014Q1

REPORT INFORMATION
  Report Type: Spontaneous
  Country: US (occurrence: US)
  Receive Date: 20140227
  Receipt Date: 20140227
  Transmission Date: 20141002
  Serious: No
  Sender: FDA-Public Use
  Company Number: US-AMGEN-USASP2013087900

PATIENT
  Age: 77 Year
  Sex: Female
  Weight: 61.22 kg

DRUGS (4)
  1. ENBREL [Suspect]
     Indication: PRODUCT USED FOR UNKNOWN INDICATION
     Dosage: 50 MG, 2 TIMES/WK
     Route: 058
  2. LIPITOR [Concomitant]
     Dosage: 20 MG, UNK
  3. LISINOPRIL [Concomitant]
     Dosage: 2.5 MG, UNK
  4. POTASSIUM GLUCONATE [Concomitant]
     Dosage: 595 MG, UNK

REACTIONS (3)
  - Cystitis [Recovered/Resolved]
  - Drug ineffective [Unknown]
  - Eye swelling [Unknown]
